FAERS Safety Report 25791544 (Version 1)
Quarter: 2025Q3

REPORT INFORMATION
  Report Type: Spontaneous
  Country: US (occurrence: None)
  Receive Date: 20250911
  Receipt Date: 20250911
  Transmission Date: 20251021
  Serious: No
  Sender: FDA-CTU
  Company Number: None

PATIENT
  Age: 70 Year
  Sex: Female

DRUGS (1)
  1. JAKAFI [Suspect]
     Active Substance: RUXOLITINIB
     Dosage: 15 MG TWICE A DAY ORAL ?
     Route: 048
     Dates: start: 20250312

REACTIONS (1)
  - Illness [None]

NARRATIVE: CASE EVENT DATE: 20250911
